FAERS Safety Report 11394216 (Version 1)
Quarter: 2015Q3

REPORT INFORMATION
  Report Type: Spontaneous
  Country: JP (occurrence: None)
  Receive Date: 20150817
  Receipt Date: 20150817
  Transmission Date: 20151125
  Serious: Yes (Hospitalization)
  Sender: FDA-Public Use
  Company Number: IPC201508-000530

PATIENT
  Age: 83 Year
  Sex: Female

DRUGS (4)
  1. CARVEDILOL. [Concomitant]
     Active Substance: CARVEDILOL
  2. AMLODIPINE [Concomitant]
     Active Substance: AMLODIPINE BESYLATE
  3. VALSARTAN. [Concomitant]
     Active Substance: VALSARTAN
  4. WARFARIN (WARFARIN) (WARFARIN) [Suspect]
     Active Substance: WARFARIN
     Indication: CEREBRAL INFARCTION

REACTIONS (7)
  - Coagulopathy [None]
  - Haemorrhage subcutaneous [None]
  - Vitamin K deficiency [None]
  - Altered state of consciousness [None]
  - Anaemia [None]
  - Hypotension [None]
  - Leukocytosis [None]
